FAERS Safety Report 4463755-6 (Version None)
Quarter: 2004Q3

REPORT INFORMATION
  Report Type: 
  Country: None (occurrence: None)
  Receive Date: 20040929
  Receipt Date: 20040914
  Transmission Date: 20050211
  Serious: Yes (Other)
  Sender: FDA-Public Use
  Company Number: B0345275A

PATIENT
  Age: 49 Year
  Sex: Male

DRUGS (4)
  1. EPIVIR [Suspect]
  2. RETROVIR [Suspect]
  3. LOPINAVIR + RITONAVIR (FORMULATION UNKNOWN) (LOPINAVIR + RITONAVIR) [Suspect]
  4. FLUCONAZOLE [Concomitant]

REACTIONS (3)
  - DISEASE RECURRENCE [None]
  - MENINGITIS CRYPTOCOCCAL [None]
  - VASCULITIS [None]
